FAERS Safety Report 19668826 (Version 2)
Quarter: 2021Q3

REPORT INFORMATION
  Report Type: Report from Study
  Country: ES (occurrence: ES)
  Receive Date: 20210806
  Receipt Date: 20210909
  Transmission Date: 20211014
  Serious: Yes (Other)
  Sender: FDA-Public Use
  Company Number: ES-PFIZER INC-202100946861

PATIENT
  Age: 48 Year
  Sex: Female
  Weight: 67.8 kg

DRUGS (9)
  1. INSULIN GLARGINE [Suspect]
     Active Substance: INSULIN GLARGINE
     Dosage: 46 IU, QD
     Route: 058
  2. ALPRAZOLAM. [Suspect]
     Active Substance: ALPRAZOLAM
     Indication: DEPRESSION
     Dosage: 30 MG, QD
     Route: 048
  3. INSULIN GLARGINE [Suspect]
     Active Substance: INSULIN GLARGINE
     Indication: TYPE 2 DIABETES MELLITUS
     Dosage: 32 IU, QD
     Route: 058
  4. INSULIN GLARGINE [Suspect]
     Active Substance: INSULIN GLARGINE
     Dosage: 20 IU
     Route: 058
  5. ALPRAZOLAM. [Suspect]
     Active Substance: ALPRAZOLAM
     Dosage: 30 MG, QD
     Route: 048
  6. INSULIN GLARGINE [Suspect]
     Active Substance: INSULIN GLARGINE
     Dosage: 42 IU, QD
     Route: 058
  7. ALPRAZOLAM. [Suspect]
     Active Substance: ALPRAZOLAM
     Indication: ANXIETY
     Dosage: 15 MG, QD
     Route: 048
  8. ALPRAZOLAM. [Suspect]
     Active Substance: ALPRAZOLAM
     Dosage: UNK
  9. INSULIN GLARGINE [Suspect]
     Active Substance: INSULIN GLARGINE
     Dosage: 26 IU
     Route: 058
     Dates: start: 2018

REACTIONS (29)
  - Nervousness [Recovering/Resolving]
  - Anxiety [Recovering/Resolving]
  - Intracardiac thrombus [Recovered/Resolved]
  - Blood glucose increased [Not Recovered/Not Resolved]
  - Pain [Unknown]
  - Asthenia [Recovered/Resolved]
  - Cerebrovascular accident [Recovered/Resolved with Sequelae]
  - Dizziness [Recovered/Resolved]
  - Dry mouth [Recovered/Resolved]
  - Intentional product use issue [Unknown]
  - Blood glucose increased [Recovered/Resolved]
  - Neck pain [Unknown]
  - Nervousness [Recovered/Resolved]
  - Product storage error [Unknown]
  - Visual acuity reduced [Unknown]
  - Hemiparesis [Recovering/Resolving]
  - Rash macular [Recovered/Resolved]
  - Blood glucose fluctuation [Not Recovered/Not Resolved]
  - Blood glucose increased [Recovered/Resolved]
  - Self-injurious ideation [Unknown]
  - Headache [Recovered/Resolved]
  - Multiple use of single-use product [Unknown]
  - Headache [Recovered/Resolved]
  - Chest discomfort [Recovering/Resolving]
  - Headache [Recovered/Resolved]
  - Psychiatric symptom [Unknown]
  - Hyperglycaemia [Recovered/Resolved]
  - Speech disorder [Recovering/Resolving]
  - Hypoglycaemia [Recovered/Resolved]

NARRATIVE: CASE EVENT DATE: 2021
